FAERS Safety Report 24716233 (Version 2)
Quarter: 2024Q4

REPORT INFORMATION
  Report Type: Spontaneous
  Country: PE (occurrence: PE)
  Receive Date: 20241210
  Receipt Date: 20241227
  Transmission Date: 20250115
  Serious: Yes (Other)
  Sender: RANBAXY
  Company Number: PE-SUN PHARMACEUTICAL INDUSTRIES LTD-2024R1-483370

PATIENT
  Age: 72 Year
  Sex: Female

DRUGS (2)
  1. FUROSEMIDE [Suspect]
     Active Substance: FUROSEMIDE
     Indication: Product used for unknown indication
     Dosage: UNK
     Route: 065
  2. MIRTAZAPINE [Suspect]
     Active Substance: MIRTAZAPINE
     Indication: Depression
     Dosage: UNK
     Route: 065

REACTIONS (3)
  - Kwashiorkor [Unknown]
  - Oedema [Unknown]
  - Hypernatraemia [Unknown]
